FAERS Safety Report 5474534-5 (Version None)
Quarter: 2007Q4

REPORT INFORMATION
  Report Type: 
  Country: None (occurrence: None)
  Receive Date: 20071002
  Receipt Date: 20070924
  Transmission Date: 20080405
  Serious: Yes (Hospitalization, Other)
  Sender: FDA-Public Use
  Company Number: CH-ELI_LILLY_AND_COMPANY-CH200709004875

PATIENT
  Age: 68 Year
  Sex: Female

DRUGS (8)
  1. ZYPREXA [Suspect]
     Dosage: 15 MG, DAILY (1/D)
     Route: 048
     Dates: start: 20060101, end: 20070813
  2. ZYPREXA [Suspect]
     Dosage: 10 MG, DAILY (1/D)
     Route: 048
     Dates: start: 20070814, end: 20070815
  3. ZYPREXA [Suspect]
     Dosage: 5 MG, DAILY (1/D)
     Route: 048
     Dates: start: 20070816, end: 20070816
  4. PRAZINE [Concomitant]
     Dosage: 25 MG, DAILY (1/D)
     Route: 048
     Dates: start: 20030101, end: 20070813
  5. REMERON [Concomitant]
     Dosage: 30 MG, DAILY (1/D)
     Route: 048
     Dates: start: 20061201
  6. GLIMEPIRIDE [Concomitant]
     Indication: DIABETES MELLITUS
     Dosage: 1.5 MG, DAILY (1/D)
     Route: 048
     Dates: start: 20070101
  7. METFIN [Concomitant]
     Indication: DIABETES MELLITUS
     Dosage: 3000 MG, DAILY (1/D)
     Route: 048
     Dates: start: 20040101
  8. INSULATARD [Concomitant]
     Indication: DIABETES MELLITUS
     Dosage: 12 U, PER DAY
     Dates: start: 20050101

REACTIONS (2)
  - CEREBRAL INFARCTION [None]
  - HOSPITALISATION [None]
